FAERS Safety Report 10493117 (Version 1)
Quarter: 2014Q4

REPORT INFORMATION
  Report Type: Spontaneous
  Country: US (occurrence: US)
  Receive Date: 20141002
  Receipt Date: 20141002
  Transmission Date: 20150528
  Serious: No
  Sender: FDA-Public Use
  Company Number: US-GLAXOSMITHKLINE-A1079223A

PATIENT
  Age: 70 Year
  Sex: Female

DRUGS (10)
  1. IBUPROFEN. [Concomitant]
     Active Substance: IBUPROFEN
  2. FISH OIL [Concomitant]
     Active Substance: FISH OIL
  3. LEVOTHYROXINE [Concomitant]
     Active Substance: LEVOTHYROXINE
  4. SINGULAIR [Concomitant]
     Active Substance: MONTELUKAST SODIUM
  5. ANASTROZOLE. [Concomitant]
     Active Substance: ANASTROZOLE
  6. BONIVA [Concomitant]
     Active Substance: IBANDRONATE SODIUM
  7. LOSARTAN [Concomitant]
     Active Substance: LOSARTAN
  8. MULTIVITAMIN [Concomitant]
     Active Substance: VITAMINS
  9. ADVAIR HFA [Suspect]
     Active Substance: FLUTICASONE PROPIONATE\SALMETEROL XINAFOATE
     Indication: ASTHMA
     Dosage: 1PUFF TWICE PER DAY
     Route: 055
     Dates: start: 2000
  10. VITAMIN C [Concomitant]
     Active Substance: ASCORBIC ACID

REACTIONS (2)
  - Orthopnoea [Recovering/Resolving]
  - Drug effect decreased [Unknown]

NARRATIVE: CASE EVENT DATE: 2014
